FAERS Safety Report 8457801-2 (Version None)
Quarter: 2012Q2

REPORT INFORMATION
  Report Type: 
  Country: None (occurrence: None)
  Receive Date: 20120323
  Receipt Date: 20111014
  Transmission Date: 20120825
  Serious: Yes (Other)
  Sender: FDA-Public Use
  Company Number: 163-21880-11081553

PATIENT
  Age: 76 Year
  Sex: Female

DRUGS (7)
  1. ACYCLOVIR [Concomitant]
  2. REVLIMID [Suspect]
     Indication: MULTIPLE MYELOMA
     Dosage: 25 MG, DAILY X 21 DAYS, PO; 25 MG, DAILY X 21 DAYS, PO; DAILY, PO; 10 MG, X  21, PO
     Route: 048
     Dates: start: 20110801
  3. REVLIMID [Suspect]
     Indication: MULTIPLE MYELOMA
     Dosage: 25 MG, DAILY X 21 DAYS, PO; 25 MG, DAILY X 21 DAYS, PO; DAILY, PO; 10 MG, X  21, PO
     Route: 048
     Dates: start: 20110401
  4. REVLIMID [Suspect]
     Indication: MULTIPLE MYELOMA
     Dosage: 25 MG, DAILY X 21 DAYS, PO; 25 MG, DAILY X 21 DAYS, PO; DAILY, PO; 10 MG, X  21, PO
     Route: 048
     Dates: start: 20110601
  5. REVLIMID [Suspect]
     Indication: MULTIPLE MYELOMA
     Dosage: 25 MG, DAILY X 21 DAYS, PO; 25 MG, DAILY X 21 DAYS, PO; DAILY, PO; 10 MG, X  21, PO
     Route: 048
     Dates: start: 20090201
  6. ASPIRIN [Concomitant]
  7. DEXAMETHASONE (DEXAMETHASONE) [Concomitant]

REACTIONS (2)
  - PLATELET COUNT DECREASED [None]
  - WHITE BLOOD CELL COUNT DECREASED [None]
